FAERS Safety Report 4443162-2 (Version None)
Quarter: 2004Q3

REPORT INFORMATION
  Report Type: 
  Country: None (occurrence: None)
  Receive Date: 20040903
  Receipt Date: 20040706
  Transmission Date: 20050211
  Serious: Yes (Other)
  Sender: FDA-Public Use
  Company Number: 2004UW13832

PATIENT
  Sex: Female

DRUGS (4)
  1. CRESTOR [Suspect]
     Indication: BLOOD CHOLESTEROL INCREASED
     Dosage: 10 MG QD PO
     Route: 048
  2. ACIPHEX [Concomitant]
  3. METOPROLOL [Concomitant]
  4. ECOTRIN [Concomitant]

REACTIONS (5)
  - ARTHRITIS [None]
  - DIZZINESS [None]
  - HEPATIC STEATOSIS [None]
  - MYALGIA [None]
  - SPINAL DISORDER [None]
